FAERS Safety Report 18861375 (Version 1)
Quarter: 2021Q1

REPORT INFORMATION
  Report Type: Spontaneous
  Country: GB (occurrence: GB)
  Receive Date: 20210208
  Receipt Date: 20210208
  Transmission Date: 20210420
  Serious: Yes (Hospitalization)
  Sender: FDA-Public Use
  Company Number: NVSC2021GB021925

PATIENT
  Age: 75 Year
  Sex: Female

DRUGS (67)
  1. PARACETAMOL [Concomitant]
     Active Substance: ACETAMINOPHEN
     Indication: LOWER RESPIRATORY TRACT INFECTION
     Dosage: UNK
     Route: 065
  2. OMEPRAZOLE. [Concomitant]
     Active Substance: OMEPRAZOLE
     Indication: BARRETT^S OESOPHAGUS
     Dosage: 40 MG, QD
     Route: 048
     Dates: start: 201710
  3. METRONIDAZOLE. [Concomitant]
     Active Substance: METRONIDAZOLE
     Indication: PRODUCT USED FOR UNKNOWN INDICATION
     Dosage: 800 MG, QD
     Route: 065
     Dates: start: 20181221, end: 20181221
  4. SANDO K [Concomitant]
     Dosage: 2 DF, 3 DAYS
     Route: 048
     Dates: start: 20180321, end: 20180325
  5. IMMUNOGLOBULIN [Concomitant]
     Indication: INFECTION PROPHYLAXIS
     Dosage: 20 G, Q3W
     Route: 042
     Dates: start: 20180318, end: 201811
  6. BACTRIM [Concomitant]
     Active Substance: SULFAMETHOXAZOLE\TRIMETHOPRIM
     Indication: ANTIBIOTIC PROPHYLAXIS
     Dosage: 480 MG, QD
     Route: 048
     Dates: start: 20190322, end: 20191004
  7. CLENIL MODULITE [Concomitant]
     Active Substance: BECLOMETHASONE DIPROPIONATE
     Indication: LOWER RESPIRATORY TRACT INFECTION
     Dosage: UNK( 2 PUFF,21 IN 1 D)
     Route: 048
     Dates: start: 20181225
  8. VENETOCLAX. [Suspect]
     Active Substance: VENETOCLAX
     Dosage: 400 MG, QD
     Route: 048
     Dates: start: 20190524, end: 20191101
  9. OMEPRAZOLE. [Concomitant]
     Active Substance: OMEPRAZOLE
     Indication: DYSPEPSIA
     Dosage: 20 MG, QD
     Route: 048
     Dates: start: 20181228
  10. QUININE SULPHATE [Concomitant]
     Active Substance: QUININE SULFATE
     Indication: PROPHYLAXIS
     Dosage: 300 MG, QD
     Route: 048
     Dates: start: 20180322
  11. BONJELA [Concomitant]
     Active Substance: CETALKONIUM CHLORIDE\CHOLINE SALICYLATE\MENTHOL
     Indication: MOUTH ULCERATION
     Dosage: UNK (1 APPLICATION AS NEEDED (AS REQUIRED))
     Route: 048
     Dates: start: 20170619
  12. SALBUTAMOL [Concomitant]
     Active Substance: ALBUTEROL
     Indication: RESPIRATORY TRACT INFECTION
     Dosage: UNK
     Route: 065
  13. SANDO K [Concomitant]
     Indication: HYPOKALAEMIA
     Dosage: 2 DF, QD
     Route: 048
     Dates: start: 20170412, end: 20170412
  14. SANDO K [Concomitant]
     Dosage: 6 DF, QD
     Route: 048
     Dates: start: 20181225, end: 20181227
  15. CORSODYL [Concomitant]
     Active Substance: CHLORHEXIDINE GLUCONATE
     Indication: MOUTH ULCERATION
     Dosage: UNK(5?10 ML AS REQUIRED)
     Route: 048
     Dates: start: 20170604
  16. PARACETAMOL [Concomitant]
     Active Substance: ACETAMINOPHEN
     Indication: HEADACHE
     Dosage: 1 G, PRN
     Route: 048
     Dates: start: 20170410, end: 20170418
  17. SALBUTAMOL [Concomitant]
     Active Substance: ALBUTEROL
     Indication: DYSPNOEA
     Dosage: 200 UG, PRN
     Route: 048
     Dates: start: 1997, end: 20181220
  18. SALBUTAMOL [Concomitant]
     Active Substance: ALBUTEROL
     Indication: PNEUMONIA
     Dosage: 2.5 MG
     Route: 055
     Dates: start: 20181221
  19. SANDO K [Concomitant]
     Dosage: 6 DF, QD
     Route: 048
     Dates: start: 20170413, end: 20170413
  20. SANDO K [Concomitant]
     Dosage: 1 DF, QD, 1 TABLET (1 TABLET,1 IN 1 D)
     Route: 048
     Dates: start: 20180320, end: 20180320
  21. IMMUNOGLOBULIN [Concomitant]
     Dosage: 20 G, Q3W
     Route: 042
     Dates: start: 20190107
  22. VENTOLIN [Concomitant]
     Active Substance: ALBUTEROL SULFATE
     Indication: ASTHMA
     Dosage: UNK(4 PUFF (2 PUFF,2 IN 1 D)
     Route: 048
     Dates: start: 1988
  23. DEXAMETHASONE. [Suspect]
     Active Substance: DEXAMETHASONE
     Indication: PLASMA CELL MYELOMA
     Dosage: 20 MG (CYCLE 1? 8: ON DAYS 1, 2, 4, 5, 8, 9, 11 AND 12 OF 21 DAY CYCLE)
     Route: 048
     Dates: start: 20170404, end: 20190927
  24. DEXAMETHASONE. [Suspect]
     Active Substance: DEXAMETHASONE
     Dosage: 20 MG (CYCLE 9 AND BEYOND: ON DAYS 1, 2, 8, 9, 15, 16, 22 AND 23 OF 35 DAY CYCLE)
     Route: 048
     Dates: start: 20171003, end: 20190511
  25. VENETOCLAX. [Suspect]
     Active Substance: VENETOCLAX
     Dosage: 600 MG, QD
     Route: 048
     Dates: start: 20170530, end: 20190223
  26. OMEPRAZOLE. [Concomitant]
     Active Substance: OMEPRAZOLE
     Indication: OESOPHAGEAL ULCER
     Dosage: UNK
     Route: 065
  27. METRONIDAZOLE. [Concomitant]
     Active Substance: METRONIDAZOLE
     Dosage: 800 MG, QD
     Route: 048
     Dates: start: 20181222
  28. MAGNESIUM [Concomitant]
     Active Substance: MAGNESIUM
     Indication: MUSCLE SPASMS
     Dosage: 1 UNK, QD (1 SACHET)
     Route: 048
     Dates: start: 20171221
  29. ALUDROX [Concomitant]
     Indication: HYPOMAGNESAEMIA
     Dosage: 1 DF, QD
     Route: 048
     Dates: start: 201906
  30. METOCLOPRAMIDE. [Concomitant]
     Active Substance: METOCLOPRAMIDE
     Indication: PROPHYLAXIS OF NAUSEA AND VOMITING
     Dosage: UNK
     Route: 065
  31. DEXAMETHASONE. [Suspect]
     Active Substance: DEXAMETHASONE
     Dosage: 12 MG (CYCLE 9 AND BEYOND: ON DAYS 1, 2, 8, 9, 15, 16, 22 AND 23 OF 35 DAY CYCLE)
     Route: 048
     Dates: start: 20190524, end: 20191019
  32. PARACETAMOL [Concomitant]
     Active Substance: ACETAMINOPHEN
     Indication: PNEUMONIA
     Dosage: 1 G, PRN
     Route: 048
     Dates: start: 20181221, end: 20181228
  33. PARACETAMOL [Concomitant]
     Active Substance: ACETAMINOPHEN
     Indication: ARTHRALGIA
     Dosage: UNK
     Route: 065
  34. OMEPRAZOLE. [Concomitant]
     Active Substance: OMEPRAZOLE
     Indication: HIATUS HERNIA
     Dosage: 20 MG, QD
     Route: 048
     Dates: start: 201609, end: 201710
  35. VALACYCLOVIR [Concomitant]
     Active Substance: VALACYCLOVIR HYDROCHLORIDE
     Indication: ANTIVIRAL PROPHYLAXIS
     Dosage: 500 MG, QD
     Route: 048
     Dates: start: 20170604
  36. SANDO K [Concomitant]
     Dosage: 4 DF, QD
     Route: 048
     Dates: start: 20170415, end: 20170415
  37. SANDO K [Concomitant]
     Dosage: 2 DF, 3 DAYS
     Route: 048
     Dates: start: 20171231, end: 20180104
  38. BACTRIM [Concomitant]
     Active Substance: SULFAMETHOXAZOLE\TRIMETHOPRIM
     Dosage: 480 MG, QD
     Route: 048
     Dates: start: 20191011
  39. METOCLOPRAMIDE. [Concomitant]
     Active Substance: METOCLOPRAMIDE
     Indication: VOMITING
     Dosage: 10 MG, PRN
     Route: 048
     Dates: start: 20170410
  40. LEVOFLOXACIN. [Concomitant]
     Active Substance: LEVOFLOXACIN
     Dosage: 500 MG
     Route: 048
     Dates: start: 20191011
  41. VELCADE [Suspect]
     Active Substance: BORTEZOMIB
     Dosage: 1.05 MG/M2 (CYCLE 9 AND BEYOND: ON DAYS 1, 8, 15 AND 22 OF 35 DAY CYCLE)
     Route: 058
     Dates: start: 20190726, end: 20191018
  42. VELCADE [Suspect]
     Active Substance: BORTEZOMIB
     Dosage: 1.05 MG/M2 (CYCLE 9 AND BEYOND: ON DAYS 1, 8, 15 AND 22 OF 35 DAY CYCLE (1.05 MG))
     Route: 058
     Dates: start: 20191213
  43. GAVISCON [Concomitant]
     Active Substance: ALUMINUM HYDROXIDE\MAGNESIUM CARBONATE
     Indication: FLATULENCE
     Dosage: (5 ML, AS REQUIRED )
     Route: 048
     Dates: start: 20170626
  44. DULOXETINE HYDROCHLORIDE. [Concomitant]
     Active Substance: DULOXETINE HYDROCHLORIDE
     Indication: PAIN IN EXTREMITY
     Dosage: 30 MG, QD
     Route: 048
     Dates: start: 20180830
  45. DIFFLAM [BENZYDAMINE] [Concomitant]
     Active Substance: BENZYDAMINE
     Indication: MOUTH ULCERATION
     Dosage: UNK (5 10 ML AS NEEDED (AS REQUIRED))
     Route: 048
     Dates: start: 20170619
  46. ZOMETA [Concomitant]
     Active Substance: ZOLEDRONIC ACID
     Indication: BONE LESION
     Dosage: 4 MG, Q4W
     Route: 042
     Dates: start: 201312
  47. PARACETAMOL [Concomitant]
     Active Substance: ACETAMINOPHEN
     Indication: PAIN IN EXTREMITY
     Dosage: 1 G, PRN
     Route: 048
     Dates: start: 20170505
  48. FLUDROCORTISONE [Concomitant]
     Active Substance: FLUDROCORTISONE
     Indication: ORTHOSTATIC HYPOTENSION
     Dosage: UNK
     Route: 048
     Dates: start: 20190418
  49. SANDO K [Concomitant]
     Dosage: 2 DF, QD, 1 TABLET (1 TABLET,1 IN 1 D)
     Route: 048
     Dates: start: 20181224, end: 20181224
  50. SANDO K [Concomitant]
     Dosage: 1 DF, QD, 1 TABLET (1 TABLET,1 IN 1 D)
     Route: 048
     Dates: start: 20190117, end: 20190506
  51. SANDO K [Concomitant]
     Dosage: 2 DF, QD
     Route: 048
     Dates: start: 20190523
  52. CETIRIZINE HYDROCHLORIDE. [Concomitant]
     Active Substance: CETIRIZINE HYDROCHLORIDE
     Indication: SEASONAL ALLERGY
     Dosage: 10 MG, PRN
     Route: 048
     Dates: start: 20170422
  53. BECLOMETASONE [Concomitant]
     Active Substance: BECLOMETHASONE DIPROPIONATE
     Indication: ASTHMA
     Dosage: 800 UG, QD
     Route: 048
     Dates: start: 1997
  54. VISCOTEARS [Concomitant]
     Active Substance: CARBOMER
     Indication: DRY EYE
     Dosage: UNK, PRN (1 DRP)
     Route: 061
     Dates: start: 20181225
  55. MAGNESIUM ASPARTATE [Concomitant]
     Active Substance: MAGNESIUM ASPARTATE
     Indication: HYPOMAGNESAEMIA
     Dosage: 243 MG, QD
     Route: 048
     Dates: start: 20190117
  56. ADCAL [Concomitant]
     Indication: MINERAL SUPPLEMENTATION
     Dosage: UNK
     Route: 048
  57. LEVOFLOXACIN. [Concomitant]
     Active Substance: LEVOFLOXACIN
     Indication: ANTIBIOTIC PROPHYLAXIS
     Dosage: 500 MG
     Route: 048
     Dates: start: 20190322, end: 20191004
  58. LOPERAMIDE HYDROCHLORIDE. [Concomitant]
     Active Substance: LOPERAMIDE HYDROCHLORIDE
     Indication: DIARRHOEA
     Dosage: UNK
     Route: 048
     Dates: start: 201705
  59. DEXAMETHASONE. [Suspect]
     Active Substance: DEXAMETHASONE
     Dosage: 12 MG (CYCLE 9 AND BEYOND: ON DAYS 1, 2, 8, 9, 15, 16, 22 AND 23 OF 35 DAY CYCLE (12 MG))
     Route: 048
     Dates: start: 20191213
  60. VENETOCLAX. [Suspect]
     Active Substance: VENETOCLAX
     Indication: PLASMA CELL MYELOMA
     Dosage: 800 MG, QD
     Route: 048
     Dates: start: 20170404, end: 20170522
  61. VENETOCLAX. [Suspect]
     Active Substance: VENETOCLAX
     Dosage: 600 MG, QD
     Route: 048
     Dates: start: 20190308
  62. VELCADE [Suspect]
     Active Substance: BORTEZOMIB
     Indication: PLASMA CELL MYELOMA
     Dosage: 2 MG/M2 (CYCLE 1?8: ON DAYS 1, 4, 8 AND 11 OF 21 DAY CYCLE)
     Route: 058
     Dates: start: 20170404, end: 20170512
  63. VELCADE [Suspect]
     Active Substance: BORTEZOMIB
     Dosage: 1.45 MG/M2 (CYCLE 1?8: ON DAYS 1, 4, 8 AND 11 OF 21 DAY CYCLE)
     Route: 058
     Dates: start: 20170530, end: 20170926
  64. VELCADE [Suspect]
     Active Substance: BORTEZOMIB
     Dosage: 1.45 MG (CYCLE 9 AND BEYOND: ON DAYS 1, 8, 15 AND 22 OF 35 DAY CYCLE)
     Route: 058
     Dates: start: 20171003, end: 20190510
  65. SALBUTAMOL [Concomitant]
     Active Substance: ALBUTEROL
     Indication: ASTHMA
     Dosage: UNK
     Route: 065
  66. MOVICOL [Concomitant]
     Active Substance: POLYETHYLENE GLYCOL 3350\POTASSIUM CHLORIDE\SODIUM BICARBONATE\SODIUM CHLORIDE
     Indication: CONSTIPATION
     Dosage: UNK
     Route: 048
     Dates: start: 20190626
  67. ZEROBASE [Concomitant]
     Active Substance: MINERAL OIL\PARAFFIN
     Indication: DRY SKIN
     Dosage: UNK
     Route: 061
     Dates: start: 20181225

REACTIONS (2)
  - Rhinovirus infection [Recovered/Resolved]
  - C-reactive protein increased [Recovered/Resolved]

NARRATIVE: CASE EVENT DATE: 20190222
